FAERS Safety Report 7869924 (Version 2)
Quarter: 2013Q2

REPORT INFORMATION
  Report Type: Report from Study
  Country: FR (occurrence: BR)
  Receive Date: 20110324
  Receipt Date: 20130417
  Transmission Date: 20140414
  Serious: Yes (Hospitalization)
  Sender: FDA-Public Use
  Company Number: BR-GILEAD-2011-0037744

PATIENT
  Age: 31 Year
  Sex: Male

DRUGS (6)
  1. TENOFOVIR DISOPROXIL FUMARATE [Suspect]
     Indication: HIV INFECTION
     Route: 048
     Dates: start: 20110214
  2. ISENTRESS [Suspect]
     Indication: HIV INFECTION
     Dates: start: 20110214
  3. LAMIVUDINE [Suspect]
     Indication: HIV INFECTION
     Route: 048
     Dates: start: 20110214
  4. RIFAMPIN [Suspect]
     Indication: TUBERCULOSIS
     Dosage: 600 MG, QD
     Dates: start: 20110201
  5. ETHAMBUTOL [Suspect]
     Indication: TUBERCULOSIS
     Dates: start: 20110201
  6. PYRAZINAMIDE [Suspect]
     Indication: TUBERCULOSIS
     Dates: start: 20110201

REACTIONS (1)
  - Deep vein thrombosis [Recovered/Resolved]
